FAERS Safety Report 5834494-1 (Version None)
Quarter: 2008Q3

REPORT INFORMATION
  Report Type: 
  Country: None (occurrence: None)
  Receive Date: 20080801
  Receipt Date: 20080716
  Transmission Date: 20090109
  Serious: Yes (Life-Threatening, Other)
  Sender: FDA-Public Use
  Company Number: 2008AL008331

PATIENT
  Age: 47 Year
  Sex: Male
  Weight: 83.9154 kg

DRUGS (2)
  1. DIGOXIN [Suspect]
     Indication: ATRIAL FIBRILLATION
     Dosage: 0.125MG DAILY PO
     Route: 048
     Dates: start: 20070101
  2. DIGOXIN [Suspect]
     Indication: ATRIAL FIBRILLATION
     Dosage: 0.25MG DAILY PO
     Route: 048
     Dates: start: 20070101

REACTIONS (5)
  - ATRIAL FIBRILLATION [None]
  - DIZZINESS [None]
  - HEART RATE DECREASED [None]
  - SYNCOPE [None]
  - VENTRICULAR TACHYCARDIA [None]
